FAERS Safety Report 14083480 (Version 4)
Quarter: 2021Q4

REPORT INFORMATION
  Report Type: Spontaneous
  Country: PT (occurrence: PT)
  Receive Date: 20171013
  Receipt Date: 20211013
  Transmission Date: 20220303
  Serious: Yes (Hospitalization, Other)
  Sender: FDA-Public Use
  Company Number: PT-MYLANLABS-2017M1063062

PATIENT
  Age: 79 Year
  Sex: Female

DRUGS (4)
  1. ALLOPURINOL [Suspect]
     Active Substance: ALLOPURINOL
     Indication: Hyperuricaemia
     Dosage: UNK
  2. IBUPROFEN [Suspect]
     Active Substance: IBUPROFEN
     Indication: Osteoarthropathy
     Dosage: UNK
     Route: 065
  3. HYDROCHLOROTHIAZIDE\VALSARTAN [Suspect]
     Active Substance: HYDROCHLOROTHIAZIDE\VALSARTAN
     Indication: Hypertension
     Dosage: UNK
  4. CARVEDILOL [Suspect]
     Active Substance: CARVEDILOL
     Indication: Hypertension
     Dosage: UNK
     Route: 065

REACTIONS (10)
  - Drug reaction with eosinophilia and systemic symptoms [Unknown]
  - Purpura [Unknown]
  - Renal injury [Unknown]
  - Rash [Unknown]
  - Pruritus [Unknown]
  - Tubulointerstitial nephritis [Unknown]
  - Face oedema [Unknown]
  - Pyrexia [Unknown]
  - Off label use [Unknown]
  - Product use in unapproved indication [Unknown]
